FAERS Safety Report 19472510 (Version 1)
Quarter: 2021Q2

REPORT INFORMATION
  Report Type: Spontaneous
  Country: FR (occurrence: FR)
  Receive Date: 20210629
  Receipt Date: 20210629
  Transmission Date: 20210717
  Serious: Yes (Other)
  Sender: FDA-Public Use
  Company Number: FR-US-PROVELL PHARMACEUTICALS LLC-9247431

PATIENT
  Sex: Female

DRUGS (3)
  1. LEVOTHYROX [Suspect]
     Active Substance: LEVOTHYROXINE
     Indication: POST PROCEDURAL HYPOTHYROIDISM
     Dosage: LEVOTHYROX OLD FORMULA
  2. LEVOTHYROX [Suspect]
     Active Substance: LEVOTHYROXINE
     Dosage: LEVOTHYROX NEW FORMULA
  3. LEVOTHYROX [Suspect]
     Active Substance: LEVOTHYROXINE

REACTIONS (24)
  - Irritability [Not Recovered/Not Resolved]
  - Hepatic pain [Not Recovered/Not Resolved]
  - Memory impairment [Not Recovered/Not Resolved]
  - Dizziness [Not Recovered/Not Resolved]
  - Blood thyroid stimulating hormone increased [Not Recovered/Not Resolved]
  - Myalgia [Recovering/Resolving]
  - Alopecia [Unknown]
  - Thyroxine free increased [Unknown]
  - Diarrhoea [Recovered/Resolved]
  - Supraventricular extrasystoles [Not Recovered/Not Resolved]
  - Dyspnoea [Recovered/Resolved]
  - Sleep apnoea syndrome [Not Recovered/Not Resolved]
  - Tendonitis [Not Recovered/Not Resolved]
  - Mood swings [Not Recovered/Not Resolved]
  - Depression [Unknown]
  - Suicidal ideation [Unknown]
  - Disturbance in attention [Not Recovered/Not Resolved]
  - Time perception altered [Not Recovered/Not Resolved]
  - Anxiety [Not Recovered/Not Resolved]
  - Arthralgia [Not Recovered/Not Resolved]
  - Conversion disorder [Recovered/Resolved]
  - Fatigue [Not Recovered/Not Resolved]
  - Confusional state [Recovered/Resolved]
  - Gastrointestinal disorder [Not Recovered/Not Resolved]

NARRATIVE: CASE EVENT DATE: 201704
